FAERS Safety Report 6921442-6 (Version None)
Quarter: 2010Q3

REPORT INFORMATION
  Report Type: 
  Country: None (occurrence: None)
  Receive Date: 20100812
  Receipt Date: 20091113
  Transmission Date: 20110219
  Serious: No
  Sender: FDA-Public Use
  Company Number: A0816942A

PATIENT
  Age: 47 Year
  Sex: Female

DRUGS (2)
  1. TAGAMET HB 200 [Suspect]
  2. COD LIVER OIL [Concomitant]

REACTIONS (4)
  - CONDITION AGGRAVATED [None]
  - DRUG ADMINISTRATION ERROR [None]
  - DRUG INEFFECTIVE [None]
  - DYSPEPSIA [None]
